FAERS Safety Report 11982714 (Version 1)
Quarter: 2016Q1

REPORT INFORMATION
  Report Type: Spontaneous
  Country: CN (occurrence: CN)
  Receive Date: 20160201
  Receipt Date: 20160201
  Transmission Date: 20160526
  Serious: Yes (Other)
  Sender: FDA-Public Use
  Company Number: CN-ROCHE-1702812

PATIENT
  Sex: Female
  Weight: 53 kg

DRUGS (1)
  1. ACTEMRA [Suspect]
     Active Substance: TOCILIZUMAB
     Indication: RHEUMATOID ARTHRITIS
     Route: 041
     Dates: start: 201512

REACTIONS (3)
  - Rash [Recovering/Resolving]
  - Deafness [Recovering/Resolving]
  - Vomiting [Recovering/Resolving]
